FAERS Safety Report 15344765 (Version 1)
Quarter: 2018Q3

REPORT INFORMATION
  Report Type: Report from Study
  Country: HR (occurrence: HR)
  Receive Date: 20180903
  Receipt Date: 20180903
  Transmission Date: 20181010
  Serious: Yes (Other)
  Sender: FDA-Public Use
  Company Number: PHHY2018HR084305

PATIENT
  Age: 56 Year
  Sex: Female

DRUGS (11)
  1. LEE011 [Suspect]
     Active Substance: RIBOCICLIB
     Dosage: 600 MG, QD
     Route: 048
     Dates: start: 201804
  2. LEE011 [Suspect]
     Active Substance: RIBOCICLIB
     Dosage: 600 MG, QD
     Route: 048
     Dates: start: 201807
  3. LEE011 [Suspect]
     Active Substance: RIBOCICLIB
     Dosage: 600 MG, QD
     Route: 048
     Dates: start: 201803
  4. LEE011 [Suspect]
     Active Substance: RIBOCICLIB
     Dosage: 600 MG, QD
     Route: 048
     Dates: start: 201808
  5. LEE011 [Suspect]
     Active Substance: RIBOCICLIB
     Dosage: 600 MG, QD (21DAY /7DAYS PAUSE)
     Route: 048
     Dates: start: 201802
  6. MEGESTROL [Concomitant]
     Active Substance: MEGESTROL
     Indication: METASTASES TO SKIN
  7. LEE011 [Suspect]
     Active Substance: RIBOCICLIB
     Dosage: 600 MG, QD
     Route: 048
     Dates: start: 201806
  8. MEGESTROL [Concomitant]
     Active Substance: MEGESTROL
     Indication: BREAST CANCER METASTATIC
     Dosage: 160 MG, QD
     Route: 048
     Dates: start: 201712
  9. LEE011 [Suspect]
     Active Substance: RIBOCICLIB
     Indication: BREAST CANCER METASTATIC
     Dosage: 600 MG, QD
     Route: 048
     Dates: start: 201711
  10. LEE011 [Suspect]
     Active Substance: RIBOCICLIB
     Dosage: 600 MG, QD
     Route: 048
     Dates: start: 201805
  11. LEE011 [Suspect]
     Active Substance: RIBOCICLIB
     Indication: METASTASES TO SKIN
     Dosage: 600 MG, QD
     Route: 048
     Dates: start: 201801

REACTIONS (7)
  - Gamma-glutamyltransferase increased [Unknown]
  - Blood lactate dehydrogenase increased [Unknown]
  - Nausea [Unknown]
  - Constipation [Unknown]
  - Pancytopenia [Unknown]
  - Pyrexia [Unknown]
  - Alanine aminotransferase increased [Unknown]

NARRATIVE: CASE EVENT DATE: 201712
